FAERS Safety Report 16419099 (Version 2)
Quarter: 2019Q2

REPORT INFORMATION
  Report Type: Spontaneous
  Country: US (occurrence: US)
  Receive Date: 20190612
  Receipt Date: 20190614
  Transmission Date: 20190711
  Serious: Yes (Other)
  Sender: FDA-Public Use
  Company Number: US-CONCORDIA PHARMACEUTICALS INC.-GSH201906-001539

PATIENT
  Age: 65 Year
  Sex: Female

DRUGS (1)
  1. HYDROXYCHLOROQUINE 200 MG [Suspect]
     Active Substance: HYDROXYCHLOROQUINE
     Indication: RHEUMATOID ARTHRITIS
     Dosage: 200 MG IN THE AM AND 200 MG IN THE PM
     Dates: end: 20181128

REACTIONS (3)
  - Alopecia [Recovered/Resolved]
  - Vertigo [Recovered/Resolved]
  - Bedridden [Recovered/Resolved]
